FAERS Safety Report 5556031-1 (Version None)
Quarter: 2007Q4

REPORT INFORMATION
  Report Type: 
  Country: None (occurrence: None)
  Receive Date: 20071213
  Receipt Date: 20071205
  Transmission Date: 20080405
  Serious: Yes (Other)
  Sender: FDA-Public Use
  Company Number: CA-PFIZER INC-2007102975

PATIENT
  Age: 48 Year
  Sex: Male

DRUGS (1)
  1. LIPITOR [Suspect]
     Route: 048

REACTIONS (3)
  - NEUROPATHY PERIPHERAL [None]
  - SPEECH DISORDER [None]
  - UNEVALUABLE EVENT [None]
